FAERS Safety Report 5148992-X (Version None)
Quarter: 2006Q4

REPORT INFORMATION
  Report Type: 
  Country: None (occurrence: None)
  Receive Date: 20061113
  Receipt Date: 20061101
  Transmission Date: 20070319
  Serious: Yes (Disabling)
  Sender: FDA-Public Use
  Company Number: 2006GB01975

PATIENT
  Age: 56 Year
  Sex: Female
  Weight: 80 kg

DRUGS (1)
  1. ARIMIDEX [Suspect]
     Indication: BREAST CANCER
     Route: 048
     Dates: start: 20020601, end: 20060823

REACTIONS (7)
  - ANOREXIA [None]
  - AUTOIMMUNE DISORDER [None]
  - FATIGUE [None]
  - MOBILITY DECREASED [None]
  - MUSCULOSKELETAL PAIN [None]
  - POST VIRAL FATIGUE SYNDROME [None]
  - SYSTEMIC LUPUS ERYTHEMATOSUS [None]
